FAERS Safety Report 9241514 (Version 1)
Quarter: 2013Q2

REPORT INFORMATION
  Report Type: Spontaneous
  Country: US (occurrence: US)
  Receive Date: 20130419
  Receipt Date: 20130419
  Transmission Date: 20140414
  Serious: No
  Sender: FDA-Public Use
  Company Number: US-009507513-1304USA006298

PATIENT
  Sex: 0

DRUGS (1)
  1. IMPLANON [Suspect]
     Dosage: 1 ROD
     Dates: start: 201010

REACTIONS (3)
  - Menstruation irregular [Unknown]
  - Medical device complication [Unknown]
  - Medical device complication [Unknown]
